FAERS Safety Report 8168759-8 (Version None)
Quarter: 2012Q1

REPORT INFORMATION
  Report Type: 
  Country: None (occurrence: None)
  Receive Date: 20120227
  Receipt Date: 20120216
  Transmission Date: 20120608
  Serious: Yes (Hospitalization, Other)
  Sender: FDA-Public Use
  Company Number: US-BAXTER-2012BH003862

PATIENT
  Age: 20 Month
  Sex: Female

DRUGS (1)
  1. DIANEAL [Suspect]
     Indication: PERITONEAL DIALYSIS
     Route: 033

REACTIONS (6)
  - RESPIRATORY DISTRESS [None]
  - DEHYDRATION [None]
  - CLOSTRIDIAL INFECTION [None]
  - OXYGEN SATURATION DECREASED [None]
  - CARDIAC ARREST [None]
  - CONSTIPATION [None]
